FAERS Safety Report 14032146 (Version 1)
Quarter: 2017Q4

REPORT INFORMATION
  Report Type: Spontaneous
  Country: US (occurrence: US)
  Receive Date: 20171002
  Receipt Date: 20171002
  Transmission Date: 20180321
  Serious: No
  Sender: FDA-Public Use
  Company Number: US-BAYER-2017-185201

PATIENT
  Age: 71 Year
  Sex: Female
  Weight: 90 kg

DRUGS (3)
  1. PEGFILGRASTIM [Concomitant]
     Active Substance: PEGFILGRASTIM
     Dosage: UNK
  2. CLARITIN [Suspect]
     Active Substance: LORATADINE
     Indication: CHEMOTHERAPY
     Dosage: UNK
  3. CLARITIN [Suspect]
     Active Substance: LORATADINE
     Indication: CHEMOTHERAPY
     Dosage: 1 DF, QD AFTER CHEMO
     Route: 048
     Dates: start: 20170801, end: 20170825

REACTIONS (2)
  - Therapeutic response unexpected [None]
  - Intentional product use issue [Unknown]

NARRATIVE: CASE EVENT DATE: 2017
